FAERS Safety Report 9713366 (Version 1)
Quarter: 2013Q4

REPORT INFORMATION
  Report Type: Report from Study
  Country: AU (occurrence: AU)
  Receive Date: 20131126
  Receipt Date: 20131126
  Transmission Date: 20140711
  Serious: Yes (Other)
  Sender: FDA-Public Use
  Company Number: AU-MYLANLABS-2013S1025984

PATIENT
  Age: 52 Year
  Sex: Female

DRUGS (8)
  1. TAPENTADOL [Suspect]
     Indication: INTENTIONAL OVERDOSE
     Dosage: DF = TABLET
     Route: 048
  2. OXYCODONE [Suspect]
     Route: 065
  3. ALCOHOL [Suspect]
     Route: 065
  4. ALPRAZOLAM [Suspect]
     Route: 065
  5. GABAPENTIN [Concomitant]
     Route: 065
  6. BUPROPION [Concomitant]
     Route: 065
  7. ARMODAFINIL [Concomitant]
     Route: 065
  8. OXYCODONE/APAP                     /01601701/ [Concomitant]
     Route: 065

REACTIONS (5)
  - Hallucination [Unknown]
  - Intentional overdose [Unknown]
  - Myalgia [Unknown]
  - Arthralgia [Unknown]
  - Delusion [Unknown]
